FAERS Safety Report 8212529-9 (Version None)
Quarter: 2012Q1

REPORT INFORMATION
  Report Type: 
  Country: None (occurrence: None)
  Receive Date: 20120315
  Receipt Date: 20120306
  Transmission Date: 20120608
  Serious: Yes (Life-Threatening, Hospitalization)
  Sender: FDA-Public Use
  Company Number: DE-GLAXOSMITHKLINE-D0074745A

PATIENT
  Sex: Female

DRUGS (6)
  1. PREDNISOLONE [Suspect]
     Indication: AUTOIMMUNE THROMBOCYTOPENIA
     Route: 065
     Dates: start: 20120215, end: 20120225
  2. BISOPROLOL FUMARATE [Concomitant]
     Indication: HYPERTENSION
     Dosage: 2.5MG PER DAY
     Route: 048
  3. PROMACTA [Suspect]
     Indication: AUTOIMMUNE THROMBOCYTOPENIA
     Dosage: 75MG PER DAY
     Route: 048
     Dates: start: 20120117
  4. METFORMIN HCL [Concomitant]
     Indication: DIABETES MELLITUS
     Dosage: 1000MG TWICE PER DAY
     Route: 048
  5. VICTOZA [Concomitant]
     Indication: DIABETES MELLITUS
     Dosage: .6MG PER DAY
     Route: 058
  6. ACCUZIDE [Concomitant]
     Indication: DIABETES MELLITUS
     Dosage: 45MG PER DAY
     Route: 048

REACTIONS (10)
  - POSTRENAL FAILURE [None]
  - RENAL FUNCTION TEST ABNORMAL [None]
  - CALCULUS URETERIC [None]
  - RESPIRATORY FAILURE [None]
  - URINARY TRACT DISORDER [None]
  - PULMONARY EMBOLISM [None]
  - PNEUMONIA [None]
  - RESPIRATORY DISTRESS [None]
  - MOBILITY DECREASED [None]
  - NEPHROLITHIASIS [None]
